FAERS Safety Report 7635007-4 (Version None)
Quarter: 2011Q3

REPORT INFORMATION
  Report Type: 
  Country: None (occurrence: None)
  Receive Date: 20110718
  Receipt Date: 20110617
  Transmission Date: 20111222
  Serious: Yes (Hospitalization)
  Sender: FDA-Public Use
  Company Number: JP-005560

PATIENT
  Sex: Male
  Weight: 63.5 kg

DRUGS (5)
  1. VOGLIBOSE [Concomitant]
  2. DEGARELIX (AP3550) (240 MG, 360 MG) [Suspect]
     Indication: PROSTATE CANCER
     Dosage: (240 MG TOTAL SUBCUTANEOUS) ; (360 MG 1X/3 MONTHS SUBCUTANEOUS)
     Route: 058
     Dates: start: 20110106, end: 20110106
  3. DEGARELIX (AP3550) (240 MG, 360 MG) [Suspect]
     Indication: PROSTATE CANCER
     Dosage: (240 MG TOTAL SUBCUTANEOUS) ; (360 MG 1X/3 MONTHS SUBCUTANEOUS)
     Route: 058
     Dates: start: 20110202
  4. FELBINAC [Concomitant]
  5. LOSARTAN POTASSIUM [Concomitant]

REACTIONS (3)
  - BONE DENSITY DECREASED [None]
  - FRACTURE [None]
  - MUSCLE STRAIN [None]
